FAERS Safety Report 5834601-0 (Version None)
Quarter: 2008Q3

REPORT INFORMATION
  Report Type: 
  Country: None (occurrence: None)
  Receive Date: 20080801
  Receipt Date: 20080730
  Transmission Date: 20090109
  Serious: Yes (Hospitalization)
  Sender: FDA-Public Use
  Company Number: 2008SP013558

PATIENT
  Age: 63 Year
  Sex: Male
  Weight: 83.6 kg

DRUGS (2)
  1. TEMODAR [Suspect]
     Indication: GLIOBLASTOMA MULTIFORME
     Dosage: 75 MG/M2;QD;PO, 75 MG/M2;Q
     Route: 048
     Dates: start: 20080527, end: 20080627
  2. TEMODAR [Suspect]
     Indication: GLIOBLASTOMA MULTIFORME
     Dosage: 75 MG/M2;QD;PO, 75 MG/M2;Q
     Route: 048
     Dates: end: 20080708

REACTIONS (9)
  - BRAIN CONTUSION [None]
  - BRAIN OEDEMA [None]
  - CONVULSION [None]
  - FALL [None]
  - HAEMATOMA [None]
  - HEART RATE INCREASED [None]
  - LACERATION [None]
  - SUBARACHNOID HAEMORRHAGE [None]
  - TRANSIENT ISCHAEMIC ATTACK [None]
